FAERS Safety Report 8554124-8 (Version None)
Quarter: 2012Q3

REPORT INFORMATION
  Report Type: 
  Country: None (occurrence: None)
  Receive Date: 20120731
  Receipt Date: 20120725
  Transmission Date: 20120928
  Serious: Yes (Other)
  Sender: FDA-Public Use
  Company Number: PHHY2012IT064495

PATIENT

DRUGS (1)
  1. GILENYA [Suspect]
     Indication: RELAPSING-REMITTING MULTIPLE SCLEROSIS
     Dosage: 0.5 MG, QD
     Route: 048

REACTIONS (7)
  - CENTRAL NERVOUS SYSTEM LESION [None]
  - PARAESTHESIA [None]
  - PARAPARESIS [None]
  - APHASIA [None]
  - REBOUND EFFECT [None]
  - MULTIPLE SCLEROSIS RELAPSE [None]
  - CONFUSIONAL STATE [None]
